FAERS Safety Report 6382875-2 (Version None)
Quarter: 2009Q3

REPORT INFORMATION
  Report Type: 
  Country: None (occurrence: None)
  Receive Date: 20090928
  Receipt Date: 20090928
  Transmission Date: 20100115
  Serious: Yes (Other)
  Sender: FDA-Public Use
  Company Number: None

PATIENT
  Age: 18 Month
  Sex: Male
  Weight: 10.4327 kg

DRUGS (1)
  1. SELENIUM SULFIDE [Suspect]
     Indication: TINEA INFECTION
     Dosage: WASH HAIR 2-3 TIMES A WEEK WEEKLY TOP
     Route: 061
     Dates: start: 20090921, end: 20090921

REACTIONS (1)
  - HAIR COLOUR CHANGES [None]
